FAERS Safety Report 16734597 (Version 1)
Quarter: 2019Q3

REPORT INFORMATION
  Report Type: Spontaneous
  Country: US (occurrence: US)
  Receive Date: 20190708
  Receipt Date: 20190708
  Transmission Date: 20191005
  Serious: Yes (Other)
  Sender: FDA-Public Use
  Company Number: None

PATIENT
  Age: 47 Year
  Sex: Female
  Weight: 67.59 kg

DRUGS (2)
  1. BUPRENORPHINE 8MG [Suspect]
     Active Substance: BUPRENORPHINE
     Indication: DRUG DEPENDENCE
     Route: 048
     Dates: start: 20190628
  2. BUPRENORPHINE 8MG [Suspect]
     Active Substance: BUPRENORPHINE
     Indication: OSTEOMYELITIS
     Route: 048
     Dates: start: 20190628

REACTIONS (2)
  - Product use in unapproved indication [None]
  - Product prescribing error [None]

NARRATIVE: CASE EVENT DATE: 20190703
